FAERS Safety Report 22229387 (Version 4)
Quarter: 2023Q4

REPORT INFORMATION
  Report Type: Report from Study
  Country: US (occurrence: US)
  Receive Date: 20230419
  Receipt Date: 20231108
  Transmission Date: 20240109
  Serious: Yes (Other)
  Sender: FDA-Public Use
  Company Number: US-ABBVIE-4733232

PATIENT
  Sex: Male

DRUGS (2)
  1. HUMIRA [Suspect]
     Active Substance: ADALIMUMAB
     Indication: Product used for unknown indication
     Dosage: FORM STRENGTH: 40MG CITRATE FREE
     Route: 058
     Dates: start: 20220916
  2. HUMIRA [Suspect]
     Active Substance: ADALIMUMAB
     Dosage: FORM STRENGTH: 40 MILLIGRAM?CITRATE FREE
     Route: 058

REACTIONS (22)
  - Craniocerebral injury [Unknown]
  - Muscle spasms [Unknown]
  - Road traffic accident [Unknown]
  - Food poisoning [Recovering/Resolving]
  - Cholecystectomy [Unknown]
  - Chronic hepatitis C [Unknown]
  - Surgery [Unknown]
  - Spinal pain [Recovering/Resolving]
  - Hepatic cirrhosis [Recovering/Resolving]
  - Arthralgia [Recovering/Resolving]
  - Testicular rupture [Unknown]
  - Wound haemorrhage [Recovering/Resolving]
  - Joint swelling [Unknown]
  - Dry mouth [Recovering/Resolving]
  - Weight increased [Recovering/Resolving]
  - Scrotal pain [Recovering/Resolving]
  - Hair growth abnormal [Unknown]
  - Rectal haemorrhage [Unknown]
  - Back pain [Unknown]
  - Hepatomegaly [Unknown]
  - Wound abscess [Recovering/Resolving]
  - Gait disturbance [Unknown]

NARRATIVE: CASE EVENT DATE: 20230101
